FAERS Safety Report 6051144-2 (Version None)
Quarter: 2009Q1

REPORT INFORMATION
  Report Type: 
  Country: None (occurrence: None)
  Receive Date: 20090121
  Receipt Date: 20090105
  Transmission Date: 20090719
  Serious: Yes (Hospitalization)
  Sender: FDA-Public Use
  Company Number: PAR_02505_2009

PATIENT
  Sex: Male

DRUGS (7)
  1. CHOLESTYRAMINE [Suspect]
     Indication: PRURITUS
     Dosage: (DF)
     Dates: end: 19900101
  2. CHOLESTYRAMINE [Suspect]
     Indication: PRURITUS
     Dosage: (VARYING FROM 8 TO 24 G DAILY), (8 G BID)
  3. RIFAMPICIN [Concomitant]
  4. URSODIOL [Concomitant]
  5. SIMVASTATIN [Concomitant]
  6. NALTREXONE [Concomitant]
  7. CLOMIPRAMINE HCL [Concomitant]

REACTIONS (16)
  - ARTHRALGIA [None]
  - BLOOD URINE PRESENT [None]
  - BODY TEMPERATURE INCREASED [None]
  - CHOLESTASIS [None]
  - COAGULOPATHY [None]
  - CONDITION AGGRAVATED [None]
  - DRUG INEFFECTIVE [None]
  - ERYTHEMA [None]
  - GAMMA-GLUTAMYLTRANSFERASE DECREASED [None]
  - HAEMARTHROSIS [None]
  - HEPATITIS [None]
  - JOINT SWELLING [None]
  - OEDEMA PERIPHERAL [None]
  - PERIARTICULAR DISORDER [None]
  - PRURITUS [None]
  - VITAMIN K DEFICIENCY [None]
